FAERS Safety Report 5190346-4 (Version None)
Quarter: 2006Q4

REPORT INFORMATION
  Report Type: 
  Country: None (occurrence: None)
  Receive Date: 20061222
  Receipt Date: 20060607
  Transmission Date: 20070319
  Serious: No
  Sender: FDA-Public Use
  Company Number: US-AMGEN-US182076

PATIENT
  Sex: Female

DRUGS (3)
  1. ARANESP [Suspect]
     Indication: RENAL FAILURE CHRONIC
     Route: 065
  2. HUMULIN N [Concomitant]
     Route: 065
  3. CALCITRIOL [Concomitant]
     Route: 065

REACTIONS (1)
  - MUSCLE ATROPHY [None]
